FAERS Safety Report 17147708 (Version 3)
Quarter: 2021Q4

REPORT INFORMATION
  Report Type: Spontaneous
  Country: CA (occurrence: None)
  Receive Date: 20191212
  Receipt Date: 20211228
  Transmission Date: 20220303
  Serious: Yes (Other)
  Sender: FDA-Public Use
  Company Number: CA-ROCHE-2490347

PATIENT
  Age: 57 Year
  Sex: Female

DRUGS (24)
  1. CAPECITABINE [Suspect]
     Active Substance: CAPECITABINE
     Indication: Breast cancer metastatic
     Route: 065
  2. EXEMESTANE [Suspect]
     Active Substance: EXEMESTANE
     Indication: Breast cancer metastatic
     Dosage: THERAPY DURATION 731.0
     Route: 065
  3. IBRANCE [Suspect]
     Active Substance: PALBOCICLIB
     Indication: Breast cancer metastatic
     Route: 048
  4. IBRANCE [Suspect]
     Active Substance: PALBOCICLIB
     Route: 048
  5. IBRANCE [Suspect]
     Active Substance: PALBOCICLIB
     Route: 048
  6. LETROZOLE [Suspect]
     Active Substance: LETROZOLE
     Indication: Breast cancer metastatic
     Dosage: THERAPY DURATION 9.0 YEAR
     Route: 065
  7. TAMOXIFEN [Suspect]
     Active Substance: TAMOXIFEN
     Indication: Breast cancer metastatic
     Route: 048
  8. CALCIUM [Concomitant]
     Active Substance: CALCIUM
     Indication: Product used for unknown indication
  9. CONVALLARIA MAJALIS [Concomitant]
     Active Substance: CONVALLARIA MAJALIS
     Indication: Product used for unknown indication
  10. CRATAEGUS LAEVIGATA [Concomitant]
     Indication: Product used for unknown indication
  11. PROXYPHYLLINE [Concomitant]
     Active Substance: PROXYPHYLLINE
     Indication: Product used for unknown indication
  12. DEXPANTHENOL [Concomitant]
     Active Substance: DEXPANTHENOL
     Indication: Product used for unknown indication
  13. ERGOCALCIFEROL [Concomitant]
     Active Substance: ERGOCALCIFEROL
     Indication: Product used for unknown indication
  14. FOLIC ACID [Concomitant]
     Active Substance: FOLIC ACID
     Indication: Product used for unknown indication
  15. NICOTINAMIDE [Concomitant]
     Active Substance: NIACINAMIDE
     Indication: Product used for unknown indication
  16. RIBOFLAVIN [Concomitant]
     Active Substance: RIBOFLAVIN
     Indication: Product used for unknown indication
  17. THIAMINE HYDROCHLORIDE [Concomitant]
     Active Substance: THIAMINE HYDROCHLORIDE
     Indication: Product used for unknown indication
  18. VITAMIN A [Concomitant]
     Active Substance: VITAMIN A
     Indication: Product used for unknown indication
  19. VITAMIN C [Concomitant]
     Active Substance: ASCORBIC ACID
     Indication: Product used for unknown indication
  20. MAGNESIUM [Concomitant]
     Active Substance: MAGNESIUM
     Indication: Product used for unknown indication
  21. METHADONE [Concomitant]
     Active Substance: METHADONE HYDROCHLORIDE
     Indication: Product used for unknown indication
  22. UBIDECARENONE [Concomitant]
     Active Substance: UBIDECARENONE
     Indication: Product used for unknown indication
  23. ZINC [Concomitant]
     Active Substance: ZINC
     Indication: Product used for unknown indication
  24. NAPROXEN [Concomitant]
     Active Substance: NAPROXEN

REACTIONS (7)
  - Asthenia [Unknown]
  - Breast cancer metastatic [Unknown]
  - Fatigue [Unknown]
  - Malignant neoplasm progression [Unknown]
  - Neutropenia [Unknown]
  - Pain [Unknown]
  - Tumour marker increased [Unknown]
